FAERS Safety Report 25458992 (Version 1)
Quarter: 2025Q2

REPORT INFORMATION
  Report Type: Spontaneous
  Country: IT (occurrence: IT)
  Receive Date: 20250620
  Receipt Date: 20250620
  Transmission Date: 20250717
  Serious: Yes (Disabling)
  Sender: MSN LABORATORIES PRIVATE LIMITED
  Company Number: IT-MLMSERVICE-20250529-PI524553-00057-1

PATIENT

DRUGS (2)
  1. ATORVASTATIN [Suspect]
     Active Substance: ATORVASTATIN
     Indication: Product used for unknown indication
     Route: 065
  2. ATORVASTATIN [Suspect]
     Active Substance: ATORVASTATIN
     Dosage: INCREASED
     Route: 065

REACTIONS (1)
  - Rotator cuff syndrome [Recovered/Resolved]
